FAERS Safety Report 23118895 (Version 2)
Quarter: 2023Q4

REPORT INFORMATION
  Report Type: Spontaneous
  Country: IT (occurrence: IT)
  Receive Date: 20231028
  Receipt Date: 20231030
  Transmission Date: 20240110
  Serious: Yes (Other)
  Sender: FDA-Public Use
  Company Number: None

PATIENT
  Age: 56 Year
  Sex: Male

DRUGS (25)
  1. VELCADE [Suspect]
     Active Substance: BORTEZOMIB
     Indication: Plasma cell myeloma
     Dosage: 3 CYCLES
     Route: 065
     Dates: start: 20091030, end: 20091211
  2. VELCADE [Suspect]
     Active Substance: BORTEZOMIB
     Dosage: 4 CYCLES
     Route: 065
     Dates: start: 20100115, end: 20100406
  3. VELCADE [Suspect]
     Active Substance: BORTEZOMIB
     Dosage: 2 CYCLES
     Route: 065
     Dates: start: 20100616, end: 20100803
  4. DEXAMETHASONE [Suspect]
     Active Substance: DEXAMETHASONE
     Indication: Plasma cell myeloma
     Dosage: FOUR CYCLES
     Route: 065
     Dates: start: 20080701, end: 20080923
  5. DEXAMETHASONE [Suspect]
     Active Substance: DEXAMETHASONE
     Dosage: THREE CYCLES
     Route: 065
     Dates: start: 20091030, end: 20091211
  6. DEXAMETHASONE [Suspect]
     Active Substance: DEXAMETHASONE
     Dosage: 4 CYCLES
     Route: 065
     Dates: start: 20100115, end: 20100406
  7. DEXAMETHASONE [Suspect]
     Active Substance: DEXAMETHASONE
     Dosage: 2 CYCLES
     Route: 065
     Dates: start: 20100616, end: 20100803
  8. DEXAMETHASONE [Suspect]
     Active Substance: DEXAMETHASONE
     Dosage: 7 CYCLES
     Route: 065
     Dates: start: 20151115, end: 20160225
  9. PREDNISONE [Suspect]
     Active Substance: PREDNISONE
     Indication: Plasma cell myeloma
     Dosage: SIX CYCLES
     Route: 065
     Dates: start: 20090115, end: 20090604
  10. PREDNISONE [Suspect]
     Active Substance: PREDNISONE
     Dosage: 1 CYCLE
     Route: 065
     Dates: start: 20140625
  11. INVESTIGATIONAL PRODUCT [Suspect]
     Active Substance: INVESTIGATIONAL PRODUCT
     Indication: Plasma cell myeloma
     Dosage: 11 CYCLES
     Route: 065
     Dates: start: 20140807, end: 20150526
  12. ALPELISIB [Suspect]
     Active Substance: ALPELISIB
     Indication: Plasma cell myeloma
     Dosage: 11 CYCLES
     Route: 065
     Dates: start: 20140807, end: 20150526
  13. LENALIDOMIDE [Suspect]
     Active Substance: LENALIDOMIDE
     Indication: Plasma cell myeloma
     Dosage: FOUR CYCLES
     Route: 048
     Dates: start: 20080701, end: 20080923
  14. LENALIDOMIDE [Suspect]
     Active Substance: LENALIDOMIDE
     Dosage: SIX CYCLES
     Route: 065
     Dates: start: 20090115, end: 20090604
  15. MELPHALAN [Suspect]
     Active Substance: MELPHALAN
     Indication: Plasma cell myeloma
     Dosage: SIX CYCLES
     Route: 065
     Dates: start: 20090115, end: 20090604
  16. MELPHALAN [Suspect]
     Active Substance: MELPHALAN
     Dosage: 1 CYCLE
     Route: 065
     Dates: start: 20140625
  17. CYCLOPHOSPHAMIDE [Suspect]
     Active Substance: CYCLOPHOSPHAMIDE
     Indication: Plasma cell myeloma
     Dosage: SINGLE CYCLE
     Route: 065
     Dates: start: 20081121
  18. CYCLOPHOSPHAMIDE [Suspect]
     Active Substance: CYCLOPHOSPHAMIDE
     Dosage: 2 CYCLES
     Route: 065
     Dates: start: 20100616, end: 20100803
  19. ETOPOSIDE [Suspect]
     Active Substance: ETOPOSIDE
     Indication: Plasma cell myeloma
     Dosage: 2 CYCLES
     Route: 065
     Dates: start: 20100616, end: 20100803
  20. DOXORUBICIN HYDROCHLORIDE [Suspect]
     Active Substance: DOXORUBICIN HYDROCHLORIDE
     Indication: Plasma cell myeloma
     Dosage: 4 CYCLES
     Route: 065
     Dates: start: 20100115, end: 20100406
  21. DOXORUBICIN HYDROCHLORIDE [Suspect]
     Active Substance: DOXORUBICIN HYDROCHLORIDE
     Dosage: 2 CYCLES
     Route: 065
     Dates: start: 20100616, end: 20100803
  22. POMALIDOMIDE [Suspect]
     Active Substance: POMALIDOMIDE
     Indication: Plasma cell myeloma
     Dosage: 7 CYCLES
     Route: 065
     Dates: start: 20151115, end: 20160225
  23. CARFILZOMIB [Suspect]
     Active Substance: CARFILZOMIB
     Indication: Plasma cell myeloma
     Dosage: 7 CYCLES
     Route: 065
     Dates: start: 20151115, end: 20160225
  24. BENDAMUSTINE [Suspect]
     Active Substance: BENDAMUSTINE
     Indication: Plasma cell myeloma
     Dosage: 5 CYCLES
     Route: 065
     Dates: start: 20140115, end: 20140520
  25. LAMIVUDINE [Concomitant]
     Active Substance: LAMIVUDINE
     Indication: Antiviral prophylaxis
     Dosage: UNK
     Route: 065

REACTIONS (4)
  - Plasma cell myeloma [Unknown]
  - Malignant neoplasm progression [Unknown]
  - Hepatitis B reactivation [Not Recovered/Not Resolved]
  - Neutropenia [Unknown]
